FAERS Safety Report 9801910 (Version 2)
Quarter: 2014Q1

REPORT INFORMATION
  Report Type: Spontaneous
  Country: US (occurrence: US)
  Receive Date: 20140107
  Receipt Date: 20140107
  Transmission Date: 20141002
  Serious: No
  Sender: FDA-Public Use
  Company Number: US-ALLERGAN-1312555US

PATIENT
  Age: 40 Year
  Sex: Female

DRUGS (5)
  1. ACZONE [Suspect]
     Indication: ACNE
     Dosage: UNK, QD
     Route: 061
  2. ACZONE [Suspect]
     Dosage: UNK
     Route: 061
  3. ACZONE [Suspect]
     Dosage: UNK
     Route: 061
  4. FACE WASH [Concomitant]
     Indication: PRODUCT USED FOR UNKNOWN INDICATION
  5. MOISURIZER [Concomitant]
     Indication: PRODUCT USED FOR UNKNOWN INDICATION

REACTIONS (1)
  - Rash [Recovered/Resolved]
